FAERS Safety Report 17817658 (Version 2)
Quarter: 2020Q2

REPORT INFORMATION
  Report Type: Spontaneous
  Country: HR (occurrence: HR)
  Receive Date: 20200522
  Receipt Date: 20200602
  Transmission Date: 20200714
  Serious: Yes (Death, Hospitalization, Other)
  Sender: FDA-Public Use
  Company Number: HR-AMGEN-HRVSP2020068623

PATIENT
  Sex: Male

DRUGS (1)
  1. KYPROLIS [Suspect]
     Active Substance: CARFILZOMIB
     Indication: PLASMA CELL MYELOMA
     Dosage: UNK
     Route: 065

REACTIONS (9)
  - Post procedural swelling [Unknown]
  - General physical health deterioration [Unknown]
  - Spinal pain [Not Recovered/Not Resolved]
  - Plasma cell myeloma [Fatal]
  - Blood creatinine abnormal [Recovered/Resolved]
  - Pneumonia [Unknown]
  - Bone pain [Unknown]
  - Malaise [Not Recovered/Not Resolved]
  - Post procedural discharge [Unknown]

NARRATIVE: CASE EVENT DATE: 2020
